FAERS Safety Report 26194958 (Version 1)
Quarter: 2025Q4

REPORT INFORMATION
  Report Type: Spontaneous
  Country: EU (occurrence: EU)
  Receive Date: 20251224
  Receipt Date: 20251224
  Transmission Date: 20260118
  Serious: Yes (Hospitalization, Other)
  Sender: BAUSCH AND LOMB
  Company Number: EU-BAUSCH-BH-2025-022522

PATIENT
  Age: 45 Year
  Sex: Female

DRUGS (18)
  1. BISOPROLOL [Interacting]
     Active Substance: BISOPROLOL
     Indication: Atrial fibrillation
     Dosage: ,
     Route: 065
  2. TOLPERISONE [Interacting]
     Active Substance: TOLPERISONE
     Indication: Burning sensation
     Route: 048
  3. TOLPERISONE [Interacting]
     Active Substance: TOLPERISONE
     Indication: Neck pain
  4. VENLAFAXINE [Interacting]
     Active Substance: VENLAFAXINE HYDROCHLORIDE
     Indication: Depression
     Route: 065
  5. VENLAFAXINE [Interacting]
     Active Substance: VENLAFAXINE HYDROCHLORIDE
     Indication: Pain
     Route: 065
  6. RIVAROXABAN [Interacting]
     Active Substance: RIVAROXABAN
     Indication: Atrial fibrillation
     Route: 065
  7. ACETAMINOPHEN\TRAMADOL [Interacting]
     Active Substance: ACETAMINOPHEN\TRAMADOL
     Indication: Burning sensation
     Dosage: 37.5 MG + 325 MG THREE TIMES DAILY
     Route: 065
  8. ACETAMINOPHEN\TRAMADOL [Interacting]
     Active Substance: ACETAMINOPHEN\TRAMADOL
     Indication: Neck pain
  9. METAMIZOLE [Interacting]
     Active Substance: METAMIZOLE
     Indication: Pain
     Route: 065
  10. HYDROXYZINE [Interacting]
     Active Substance: HYDROXYZINE HYDROCHLORIDE
     Indication: Product used for unknown indication
     Route: 065
  11. DEXAMETHASONE [Interacting]
     Active Substance: DEXAMETHASONE
     Indication: Product used for unknown indication
     Dosage: ,
     Route: 065
  12. ETORICOXIB [Interacting]
     Active Substance: ETORICOXIB
     Indication: Neck pain
     Route: 065
  13. RAMIPRIL [Interacting]
     Active Substance: RAMIPRIL
     Indication: Atrial fibrillation
     Route: 065
  14. ACETAMINOPHEN [Interacting]
     Active Substance: ACETAMINOPHEN
     Indication: Pain
     Route: 065
  15. PRIDINOL [Interacting]
     Active Substance: PRIDINOL
     Indication: Neck pain
     Route: 065
  16. KETOPROFEN [Interacting]
     Active Substance: KETOPROFEN
     Indication: Pain
     Route: 065
  17. AMIODARONE [Interacting]
     Active Substance: AMIODARONE
     Indication: Atrial fibrillation
     Route: 065
  18. CANNABIDIOL\HERBALS\TETRAHYDROCANNABINOL UNSPECIFIED [Interacting]
     Active Substance: CANNABIDIOL\HERBALS\TETRAHYDROCANNABINOL UNSPECIFIED
     Indication: Pain
     Dosage: CANNABIS FLOS THC 22%, CBD 1%.
     Route: 065

REACTIONS (10)
  - Neck pain [Unknown]
  - Burning sensation [Unknown]
  - Pain [Unknown]
  - Drug interaction [Unknown]
  - Hyperaesthesia [Unknown]
  - Affective disorder [Unknown]
  - Sleep disorder [Unknown]
  - Therapy non-responder [Unknown]
  - Vomiting [Unknown]
  - Nausea [Unknown]
